FAERS Safety Report 9902539 (Version 3)
Quarter: 2015Q3

REPORT INFORMATION
  Report Type: Spontaneous
  Country: US (occurrence: US)
  Receive Date: 20140217
  Receipt Date: 20150810
  Transmission Date: 20151125
  Serious: Yes (Other)
  Sender: FDA-Public Use
  Company Number: US-GILEAD-2011-0043973

PATIENT
  Age: 59 Year
  Sex: Male

DRUGS (5)
  1. LETAIRIS [Suspect]
     Active Substance: AMBRISENTAN
     Indication: VENTRICULAR SEPTAL DEFECT REPAIR
  2. LETAIRIS [Suspect]
     Active Substance: AMBRISENTAN
     Indication: PROSTHESIS IMPLANTATION
  3. LETAIRIS [Suspect]
     Active Substance: AMBRISENTAN
     Indication: PULMONARY HYPERTENSION
     Dosage: 5 MG, QD
     Route: 048
     Dates: start: 20110810
  4. LETAIRIS [Suspect]
     Active Substance: AMBRISENTAN
     Indication: MITRAL VALVE REPLACEMENT
  5. LETAIRIS [Suspect]
     Active Substance: AMBRISENTAN
     Indication: CONGENITAL ANOMALY

REACTIONS (4)
  - Swelling [Recovered/Resolved]
  - Cardiac failure [Recovering/Resolving]
  - Hot flush [Recovered/Resolved]
  - Palpitations [Recovered/Resolved]

NARRATIVE: CASE EVENT DATE: 20110821
